FAERS Safety Report 11866108 (Version 1)
Quarter: 2015Q4

REPORT INFORMATION
  Report Type: Spontaneous
  Country: JP (occurrence: JP)
  Receive Date: 20151223
  Receipt Date: 20151223
  Transmission Date: 20160305
  Serious: Yes (Other)
  Sender: FDA-Public Use
  Company Number: JP-ABBVIE-15P-087-1526910-00

PATIENT

DRUGS (1)
  1. CLARITH [Suspect]
     Active Substance: CLARITHROMYCIN
     Indication: PRODUCT USED FOR UNKNOWN INDICATION
     Dosage: DOSE: 400 MG /MONTH
     Route: 048

REACTIONS (1)
  - Acute kidney injury [Unknown]
